FAERS Safety Report 13285344 (Version 1)
Quarter: 2017Q1

REPORT INFORMATION
  Report Type: Spontaneous
  Country: US (occurrence: US)
  Receive Date: 20170301
  Receipt Date: 20170301
  Transmission Date: 20170428
  Serious: Yes (Death)
  Sender: FDA-Public Use
  Company Number: US-LANNETT COMPANY, INC.-US-2017LAN000596

PATIENT
  Age: 10 Year
  Sex: Male

DRUGS (8)
  1. CEFAZOLIN [Concomitant]
     Active Substance: CEFAZOLIN
     Indication: PRODUCT USED FOR UNKNOWN INDICATION
     Dosage: UNK
     Route: 042
  2. MORPHINE SULFATE. [Concomitant]
     Active Substance: MORPHINE SULFATE
     Indication: PRODUCT USED FOR UNKNOWN INDICATION
     Dosage: 2 MG, SINGLE
     Route: 042
  3. ONDANSETRON (2 MG/ML) [Suspect]
     Active Substance: ONDANSETRON
     Dosage: 4 MG AT 1:05 AM
     Route: 042
  4. ONDANSETRON (2 MG/ML) [Suspect]
     Active Substance: ONDANSETRON
     Indication: GASTROENTERITIS
     Dosage: 4 MG AT 7:47 PM
     Route: 042
  5. NORMAL SALINE [Concomitant]
     Active Substance: SODIUM CHLORIDE
     Indication: PRODUCT USED FOR UNKNOWN INDICATION
     Dosage: 1 L AT 4:06 PM
     Route: 042
  6. NORMAL SALINE [Concomitant]
     Active Substance: SODIUM CHLORIDE
     Dosage: 1 L OVER 1 HOUR AT 7:47
     Route: 042
  7. METRONIDAZOLE. [Concomitant]
     Active Substance: METRONIDAZOLE
     Indication: PRODUCT USED FOR UNKNOWN INDICATION
     Dosage: UNK
     Route: 042
  8. LACTATED RINGERS [Concomitant]
     Active Substance: CALCIUM CHLORIDE\POTASSIUM CHLORIDE\SODIUM CHLORIDE\SODIUM LACTATE
     Indication: PRODUCT USED FOR UNKNOWN INDICATION
     Dosage: 100 ML PER HOUR

REACTIONS (7)
  - Tachycardia [Fatal]
  - Heart rate increased [Fatal]
  - Unresponsive to stimuli [Fatal]
  - Pulseless electrical activity [Fatal]
  - Vomiting [Unknown]
  - Ventricular tachycardia [Fatal]
  - Respiration abnormal [Fatal]
